FAERS Safety Report 5585865-2 (Version None)
Quarter: 2007Q4

REPORT INFORMATION
  Report Type: 
  Country: None (occurrence: None)
  Receive Date: 20071205
  Receipt Date: 20061023
  Transmission Date: 20080405
  Serious: Yes (Death)
  Sender: FDA-Public Use
  Company Number: HQWYE486124OCT06

PATIENT
  Age: 27 Year
  Sex: Male

DRUGS (2)
  1. EFFEXOR XR [Suspect]
  2. WELLBUTRIN XL [Suspect]

REACTIONS (4)
  - COMPLETED SUICIDE [None]
  - DRUG INEFFECTIVE [None]
  - INTENTIONAL OVERDOSE [None]
  - SUICIDAL IDEATION [None]
